FAERS Safety Report 7603183-5 (Version None)
Quarter: 2011Q3

REPORT INFORMATION
  Report Type: 
  Country: None (occurrence: None)
  Receive Date: 20110712
  Receipt Date: 20110630
  Transmission Date: 20111222
  Serious: Yes (Other)
  Sender: FDA-Public Use
  Company Number: US-AMGEN-USASP2011025698

PATIENT
  Age: 52 Year
  Sex: Male

DRUGS (2)
  1. ENBREL [Suspect]
     Indication: RHEUMATOID ARTHRITIS
     Dosage: 50 MG, QWK
     Dates: start: 20100628
  2. ARAVA [Concomitant]
     Dosage: 1 MG, UNK

REACTIONS (3)
  - PAIN IN EXTREMITY [None]
  - RESTLESS LEGS SYNDROME [None]
  - ARTHRALGIA [None]
